FAERS Safety Report 10128571 (Version 4)
Quarter: 2015Q2

REPORT INFORMATION
  Report Type: Spontaneous
  Country: US (occurrence: US)
  Receive Date: 20140428
  Receipt Date: 20150504
  Transmission Date: 20150821
  Serious: Yes (Hospitalization)
  Sender: FDA-Public Use
  Company Number: US-BAYER-2014-059987

PATIENT
  Age: 48 Year
  Sex: Female
  Weight: 82 kg

DRUGS (1)
  1. MIRENA [Suspect]
     Active Substance: LEVONORGESTREL
     Indication: CONTRACEPTION
     Dosage: 20 MCG/24HR, CONT
     Route: 015
     Dates: start: 20100921, end: 20110412

REACTIONS (7)
  - Device issue [None]
  - Abdominal pain [None]
  - Injury [None]
  - Bladder perforation [None]
  - Device dislocation [None]
  - Abdominal discomfort [None]
  - Emotional distress [None]
